FAERS Safety Report 22391239 (Version 1)
Quarter: 2023Q2

REPORT INFORMATION
  Report Type: Spontaneous
  Country: TW (occurrence: TW)
  Receive Date: 20230601
  Receipt Date: 20230601
  Transmission Date: 20230721
  Serious: Yes (Hospitalization, Other)
  Sender: FDA-Public Use
  Company Number: TW-ALKEM LABORATORIES LIMITED-TW-ALKEM-2023-05812

PATIENT
  Age: 43 Year
  Sex: Male

DRUGS (2)
  1. METFORMIN HYDROCHLORIDE [Suspect]
     Active Substance: METFORMIN HYDROCHLORIDE
     Indication: Diabetes mellitus
     Dosage: 1700 MG/DAY
     Route: 065
  2. VILDAGLIPTIN [Suspect]
     Active Substance: VILDAGLIPTIN
     Indication: Diabetes mellitus
     Dosage: 100 MG/DAY
     Route: 065

REACTIONS (4)
  - Cerebrovascular accident [Recovering/Resolving]
  - Mitochondrial encephalomyopathy [Recovering/Resolving]
  - Lactic acidosis [Recovering/Resolving]
  - Diarrhoea [Unknown]
